FAERS Safety Report 4376082-2 (Version None)
Quarter: 2004Q2

REPORT INFORMATION
  Report Type: 
  Country: None (occurrence: None)
  Receive Date: 20040607
  Receipt Date: 20040528
  Transmission Date: 20050107
  Serious: Yes (Life-Threatening)
  Sender: FDA-Public Use
  Company Number: 206870

PATIENT
  Age: 74 Year
  Sex: Female
  Weight: 77 kg

DRUGS (4)
  1. ACTILYSE (ALTEPLASE) PWDR + SOLVENT, INFUSION SOLN [Suspect]
     Indication: CEREBROVASCULAR ACCIDENT
     Dosage: 70 MG, SINGLE, INTRAVENOUS
     Route: 042
     Dates: start: 20040511, end: 20040511
  2. ENALAPRIL MALEATE [Suspect]
     Indication: HYPERTENSION
     Dosage: 1 MG, SINGLE, INTRAVENOUS
     Route: 042
     Dates: start: 20040511, end: 20040511
  3. ATACAND [Concomitant]
  4. ALBETOL (LABETALOL HYDROCHLORIDE) [Concomitant]

REACTIONS (1)
  - ANAPHYLACTIC REACTION [None]
